FAERS Safety Report 14917641 (Version 1)
Quarter: 2018Q2

REPORT INFORMATION
  Report Type: Spontaneous
  Country: US (occurrence: US)
  Receive Date: 20180521
  Receipt Date: 20180521
  Transmission Date: 20180711
  Serious: Yes (Other)
  Sender: FDA-Public Use
  Company Number: US-ACCORD-067286

PATIENT
  Age: 63 Year
  Sex: Male
  Weight: 77.11 kg

DRUGS (1)
  1. PRAVASTATIN ACCORD [Suspect]
     Active Substance: PRAVASTATIN
     Indication: BLOOD CHOLESTEROL INCREASED
     Dosage: 40MG TAB QD ABOUT 3 HOURS BEFORE BEDTIME STARTED PROBABLY 3 YEARS AROUND 2015
     Route: 048

REACTIONS (2)
  - Balance disorder [Unknown]
  - Yellow skin [Unknown]
